FAERS Safety Report 6872460-8 (Version None)
Quarter: 2010Q3

REPORT INFORMATION
  Report Type: 
  Country: None (occurrence: None)
  Receive Date: 20100723
  Receipt Date: 20081112
  Transmission Date: 20110219
  Serious: Yes (Other)
  Sender: FDA-Public Use
  Company Number: US-PFIZER INC-2008082336

PATIENT
  Sex: Male
  Weight: 90.7 kg

DRUGS (2)
  1. CHANTIX [Suspect]
     Dates: start: 20080101, end: 20080101
  2. KLONOPIN [Concomitant]

REACTIONS (3)
  - CHEST PAIN [None]
  - GASTRITIS [None]
  - INSOMNIA [None]
